FAERS Safety Report 7505302-8 (Version None)
Quarter: 2011Q2

REPORT INFORMATION
  Report Type: 
  Country: None (occurrence: None)
  Receive Date: 20110420
  Receipt Date: 20110224
  Transmission Date: 20111010
  Serious: Yes (Other)
  Sender: FDA-Public Use
  Company Number: SPV1-2010-00380

PATIENT
  Age: 48 Year
  Sex: Female

DRUGS (2)
  1. LIALDA [Suspect]
     Indication: COLITIS ULCERATIVE
     Dosage: 1.2 G, 1X/DAY: QD, ORAL
     Route: 048
     Dates: start: 20090101, end: 20091201
  2. ROWASA [Concomitant]

REACTIONS (1)
  - PANCREATITIS [None]
